FAERS Safety Report 5604693-2 (Version None)
Quarter: 2008Q1

REPORT INFORMATION
  Report Type: 
  Country: None (occurrence: None)
  Receive Date: 20080128
  Receipt Date: 20080118
  Transmission Date: 20080703
  Serious: Yes (Hospitalization)
  Sender: FDA-Public Use
  Company Number: NL-AVENTIS-200810589GDDC

PATIENT
  Age: 63 Year
  Sex: Female

DRUGS (3)
  1. ARAVA [Suspect]
     Indication: RHEUMATOID ARTHRITIS
     Route: 048
     Dates: start: 20030701, end: 20071231
  2. ARTHROTEC [Concomitant]
     Indication: RHEUMATOID ARTHRITIS
  3. ACENOCOUMAROL [Concomitant]
     Dosage: DOSE: UNK
     Dates: start: 20071101

REACTIONS (3)
  - IMPAIRED HEALING [None]
  - NEUROPATHY PERIPHERAL [None]
  - TENDON RUPTURE [None]
